FAERS Safety Report 7760116-9 (Version None)
Quarter: 2011Q3

REPORT INFORMATION
  Report Type: 
  Country: None (occurrence: None)
  Receive Date: 20110919
  Receipt Date: 20110907
  Transmission Date: 20111222
  Serious: Yes (Hospitalization)
  Sender: FDA-Public Use
  Company Number: DE-UCBSA-024140

PATIENT
  Sex: Male
  Weight: 105 kg

DRUGS (16)
  1. NEUPRO [Suspect]
     Route: 062
     Dates: start: 20090718, end: 20090724
  2. CANDESARTAN CILEXETIL [Concomitant]
     Indication: HYPERTENSION
     Dates: start: 20070801
  3. AZILECT [Concomitant]
     Indication: PARKINSON'S DISEASE
     Dates: start: 20100225
  4. NITRENDIPIN [Concomitant]
     Indication: HYPERTENSION
     Dates: start: 20090301
  5. XIPAMID [Concomitant]
     Indication: HYPERTENSION
     Dates: start: 20100225
  6. NEUPRO [Suspect]
     Route: 062
     Dates: start: 20091028, end: 20100223
  7. CLARIUM [Concomitant]
     Indication: PARKINSON'S DISEASE
     Dates: start: 20100225
  8. IBUPROFEN [Concomitant]
     Indication: OSTEOARTHRITIS
     Dates: start: 20080301, end: 20110719
  9. LEVOBETA C [Concomitant]
     Indication: PARKINSON'S DISEASE
     Dosage: 100/25 MG
     Dates: start: 20100415
  10. NEUPRO [Suspect]
     Route: 062
     Dates: start: 20090725, end: 20090827
  11. ASPIRIN [Concomitant]
     Indication: PROPHYLAXIS
  12. LEVOCARB 100/25 RET. [Concomitant]
     Indication: PARKINSON'S DISEASE
     Dosage: 100/25 MG
     Dates: start: 20100225
  13. NEUPRO [Suspect]
     Route: 062
     Dates: start: 20090828, end: 20091027
  14. PANTOPRAZOLE [Concomitant]
     Indication: ANGINA PECTORIS
     Dates: start: 20100225
  15. PANTOPRAZOLE [Concomitant]
     Indication: DYSPEPSIA
     Dates: start: 20100225
  16. NEUPRO [Suspect]
     Indication: PARKINSON'S DISEASE
     Route: 062
     Dates: start: 20090711, end: 20090717

REACTIONS (1)
  - PARKINSONISM [None]
